FAERS Safety Report 9297682 (Version 1)
Quarter: 2013Q2

REPORT INFORMATION
  Report Type: Spontaneous
  Country: CH (occurrence: CH)
  Receive Date: 20130520
  Receipt Date: 20130520
  Transmission Date: 20140414
  Serious: Yes (Death, Life-Threatening, Other)
  Sender: FDA-Public Use
  Company Number: PHBS1997XX01319

PATIENT
  Age: 15 Year
  Sex: Female

DRUGS (1)
  1. LEPONEX / CLOZARIL (CLOZAPINE) [Suspect]
     Dosage: UNK
     Route: 048

REACTIONS (9)
  - Suicide attempt [Fatal]
  - Convulsion [Fatal]
  - Loss of consciousness [Fatal]
  - Respiratory failure [Fatal]
  - Bradycardia [Fatal]
  - Pulmonary oedema [Fatal]
  - Cardiac arrest [Fatal]
  - Overdose [Fatal]
  - Peripheral vascular disorder [Unknown]
